FAERS Safety Report 20794163 (Version 1)
Quarter: 2022Q2

REPORT INFORMATION
  Report Type: Spontaneous
  Country: FR (occurrence: FR)
  Receive Date: 20220506
  Receipt Date: 20220506
  Transmission Date: 20220721
  Serious: Yes (Hospitalization)
  Sender: FDA-Public Use
  Company Number: None

PATIENT
  Age: 76 Year
  Sex: Female
  Weight: 70 kg

DRUGS (10)
  1. CLONAZEPAM [Suspect]
     Active Substance: CLONAZEPAM
     Indication: Anaesthesia procedure
     Route: 042
     Dates: start: 20210317, end: 20210317
  2. PROPOFOL [Suspect]
     Active Substance: PROPOFOL
     Indication: Anaesthesia procedure
     Route: 042
     Dates: start: 20210317, end: 20210317
  3. CEFAZOLIN SODIUM [Suspect]
     Active Substance: CEFAZOLIN SODIUM
     Indication: Anaesthesia procedure
     Route: 042
     Dates: start: 20210317, end: 20210317
  4. CLOBAZAM [Suspect]
     Active Substance: CLOBAZAM
     Indication: Epilepsy
     Dosage: EVENING
     Route: 048
     Dates: start: 20210322, end: 20210326
  5. TRAMADOL HYDROCHLORIDE [Suspect]
     Active Substance: TRAMADOL HYDROCHLORIDE
     Indication: Anaesthesia procedure
     Route: 042
     Dates: start: 20210317, end: 20210317
  6. Solupred [Concomitant]
     Dosage: MORNING
     Route: 048
     Dates: start: 20210308
  7. LOVENOX [Concomitant]
     Active Substance: ENOXAPARIN SODIUM
     Dosage: 4000UI AXA/0,4ML INJ SER + S
     Route: 065
     Dates: start: 20210321
  8. VIMPAT [Concomitant]
     Active Substance: LACOSAMIDE
     Dosage: ORAL: 100 MILLIGRAMS MORNING, EVENING
     Route: 048
     Dates: start: 20210308
  9. ESOMEPRAZOLE [Concomitant]
     Active Substance: ESOMEPRAZOLE
     Dosage: EVENING, GRANULES SACHET
     Route: 048
     Dates: start: 20210308
  10. DAFALGAN [Concomitant]
     Active Substance: ACETAMINOPHEN
     Dosage: 2 TABLETS 4 TIMES/DAY AT 6H INTERVALS
     Route: 048
     Dates: start: 20210316

REACTIONS (1)
  - Hepatic cytolysis [Recovering/Resolving]

NARRATIVE: CASE EVENT DATE: 20210325
